FAERS Safety Report 7543054-6 (Version None)
Quarter: 2011Q2

REPORT INFORMATION
  Report Type: 
  Country: None (occurrence: None)
  Receive Date: 20110613
  Receipt Date: 20110531
  Transmission Date: 20111010
  Serious: Yes (Disabling, Other)
  Sender: FDA-Public Use
  Company Number: JP-PFIZER INC-2011089935

PATIENT
  Age: 77 Year
  Sex: Male

DRUGS (5)
  1. MILRILA [Concomitant]
  2. INOVAN [Concomitant]
  3. DIPRIVAN [Concomitant]
  4. PITRESSIN [Suspect]
     Indication: BLOOD PRESSURE DECREASED
     Dosage: 1 DF, 1X/DAY
     Route: 042
     Dates: start: 20110408, end: 20110412
  5. BOSMIN [Concomitant]

REACTIONS (1)
  - RENAL IMPAIRMENT [None]
